FAERS Safety Report 4450263-1 (Version None)
Quarter: 2004Q3

REPORT INFORMATION
  Report Type: 
  Country: None (occurrence: None)
  Receive Date: 20040914
  Receipt Date: 20040907
  Transmission Date: 20050211
  Serious: No
  Sender: FDA-Public Use
  Company Number: 2004UW15716

PATIENT
  Age: 18 Year
  Sex: Male
  Weight: 81.6475 kg

DRUGS (4)
  1. RHINOCORT [Suspect]
     Indication: HYPERSENSITIVITY
     Dosage: 2 SPRAY DAILY IN
     Dates: start: 20040301, end: 20040301
  2. ALLEGA-D [Concomitant]
  3. ALLEGRA [Concomitant]
  4. ADDERALL 10 [Concomitant]

REACTIONS (2)
  - SKIN TEST POSITIVE [None]
  - URTICARIA [None]
